FAERS Safety Report 10866411 (Version 1)
Quarter: 2015Q1

REPORT INFORMATION
  Report Type: Spontaneous
  Country: US (occurrence: None)
  Receive Date: 20150219
  Receipt Date: 20150219
  Transmission Date: 20150721
  Serious: Yes (Hospitalization)
  Sender: FDA-Public Use
  Company Number: None

PATIENT
  Age: 28 Year
  Sex: Male
  Weight: 81 kg

DRUGS (2)
  1. HERCEPTIN [Suspect]
     Active Substance: TRASTUZUMAB
     Indication: DYSPNOEA
     Route: 042
     Dates: start: 201403, end: 20150129
  2. CARVEDILOL. [Suspect]
     Active Substance: CARVEDILOL
     Indication: BREAST CANCER
     Dates: start: 20140312

REACTIONS (6)
  - Cardiac failure [None]
  - Orthopnoea [None]
  - Pyrexia [None]
  - Pneumonia [None]
  - Malaise [None]
  - Dyspnoea [None]

NARRATIVE: CASE EVENT DATE: 20150211
